FAERS Safety Report 5218962-1 (Version None)
Quarter: 2007Q1

REPORT INFORMATION
  Report Type: 
  Country: None (occurrence: None)
  Receive Date: 20070123
  Receipt Date: 20070109
  Transmission Date: 20070707
  Serious: Yes (Death, Other)
  Sender: FDA-Public Use
  Company Number: 2007SP000959

PATIENT
  Age: 63 Year
  Sex: Male

DRUGS (2)
  1. TEMOZOLOMIDE (S-P) [Suspect]
     Indication: GLIOBLASTOMA MULTIFORME
     Dosage: 75 MG/M2;QD;PO
     Route: 048
  2. RADIATION THERAPY (CON.) [Concomitant]

REACTIONS (3)
  - APLASTIC ANAEMIA [None]
  - BONE MARROW FAILURE [None]
  - THROMBOCYTOPENIA [None]
